FAERS Safety Report 4727556-3 (Version None)
Quarter: 2005Q3

REPORT INFORMATION
  Report Type: 
  Country: None (occurrence: None)
  Receive Date: 20050728
  Receipt Date: 20050728
  Transmission Date: 20060218
  Serious: No
  Sender: FDA-Public Use
  Company Number: None

PATIENT
  Sex: Male
  Weight: 81 kg

DRUGS (3)
  1. LOSARTAN POTASSIUM [Suspect]
     Indication: BLOOD PRESSURE
     Dosage: 25MG   QAM    ORAL
     Route: 048
     Dates: start: 20050711, end: 20050726
  2. CLARITIN [Concomitant]
  3. SIMVASTATIN [Concomitant]

REACTIONS (1)
  - COUGH [None]
